FAERS Safety Report 24415811 (Version 2)
Quarter: 2024Q4

REPORT INFORMATION
  Report Type: Report from Study
  Country: US (occurrence: US)
  Receive Date: 20241009
  Receipt Date: 20241017
  Transmission Date: 20250115
  Serious: Yes (Hospitalization, Other)
  Sender: ABBVIE
  Company Number: US-ABBVIE-5955640

PATIENT
  Age: 48 Year
  Sex: Male
  Weight: 72 kg

DRUGS (1)
  1. HUMIRA [Suspect]
     Active Substance: ADALIMUMAB
     Indication: Crohn^s disease
     Dosage: FORM STRENGTH WAS 40 MILLIGRAM
     Route: 058
     Dates: start: 2024

REACTIONS (5)
  - Loss of consciousness [Recovered/Resolved]
  - Blood magnesium decreased [Unknown]
  - Hemiparesis [Recovered/Resolved]
  - Blood potassium decreased [Unknown]
  - Headache [Recovered/Resolved]

NARRATIVE: CASE EVENT DATE: 20241006
